FAERS Safety Report 9296013 (Version 1)
Quarter: 2013Q2

REPORT INFORMATION
  Report Type: Spontaneous
  Country: JP (occurrence: JP)
  Receive Date: 20130517
  Receipt Date: 20130517
  Transmission Date: 20140414
  Serious: Yes (Hospitalization)
  Sender: FDA-Public Use
  Company Number: JP-BIOMARINAP-JP-2013-100829

PATIENT
  Age: 2 Year
  Sex: Male
  Weight: 12.8 kg

DRUGS (8)
  1. KUVAN [Suspect]
     Indication: PHENYLKETONURIA
     Dosage: 110 MG, QD
     Route: 048
     Dates: start: 20120401
  2. KUVAN [Suspect]
     Dosage: 120 MG, QD
     Route: 048
     Dates: start: 20120509, end: 20130312
  3. KUVAN [Suspect]
     Dosage: 150 MG, QD
     Route: 048
     Dates: start: 20130313
  4. DOPACOL [Concomitant]
     Indication: PHENYLKETONURIA
     Dosage: 120 MG, UNK
     Route: 048
     Dates: start: 20120401, end: 20120911
  5. DOPACOL [Concomitant]
     Dosage: 140 MG, UNK
     Route: 048
     Dates: start: 20120912, end: 20130312
  6. DOPACOL [Concomitant]
     Dosage: 140 MG, UNK
     Route: 048
     Dates: start: 20130313
  7. KLARICID                           /00984601/ [Concomitant]
     Indication: UPPER RESPIRATORY TRACT INFECTION
     Dosage: 1.2 G, UNK
     Route: 048
     Dates: start: 20120613, end: 20120620
  8. MUCODYNE [Concomitant]
     Indication: UPPER RESPIRATORY TRACT INFECTION
     Dosage: 0.7 G, UNK
     Route: 048
     Dates: start: 20120613, end: 20120620

REACTIONS (1)
  - Gastroenteritis [Recovered/Resolved]
